FAERS Safety Report 16048470 (Version 1)
Quarter: 2019Q1

REPORT INFORMATION
  Report Type: Spontaneous
  Country: US (occurrence: US)
  Receive Date: 20190307
  Receipt Date: 20190307
  Transmission Date: 20190418
  Serious: No
  Sender: FDA-Public Use
  Company Number: US-BAYER-2019-046178

PATIENT
  Age: 18 Year
  Sex: Male

DRUGS (7)
  1. ALEVE [Suspect]
     Active Substance: NAPROXEN SODIUM
  2. ONE A DAY WOMENS VITACRAVES GUMMIES [Suspect]
     Active Substance: MINERALS\VITAMINS
  3. DR SCHOLLS CUSTOM FIT ORTHOTIC INSERTS 110 [Suspect]
     Active Substance: DEVICE
  4. FLINTSTONES COMPLETE [Suspect]
     Active Substance: VITAMINS
  5. MIRALAX [Suspect]
     Active Substance: POLYETHYLENE GLYCOL 3350
     Dosage: UNK
  6. A AND D ORIGINAL [Suspect]
     Active Substance: LANOLIN\PETROLATUM
     Dosage: UNK
  7. CLARITIN [Suspect]
     Active Substance: LORATADINE

REACTIONS (1)
  - Drug ineffective [Unknown]
